FAERS Safety Report 6519856-1 (Version None)
Quarter: 2009Q4

REPORT INFORMATION
  Report Type: 
  Country: None (occurrence: None)
  Receive Date: 20091228
  Receipt Date: 20091228
  Transmission Date: 20100525
  Serious: No
  Sender: FDA-Public Use
  Company Number: None

PATIENT
  Age: 51 Year
  Sex: Female
  Weight: 86.1834 kg

DRUGS (1)
  1. LEVOFLOXACIN [Suspect]
     Indication: CHRONIC SINUSITIS
     Dosage: 1 TABLET 1 PER D FOR 10D PO
     Route: 048
     Dates: start: 20091223, end: 20091224

REACTIONS (19)
  - ABDOMINAL PAIN [None]
  - ABDOMINAL RIGIDITY [None]
  - ARTHRALGIA [None]
  - BACK PAIN [None]
  - BURNING SENSATION [None]
  - DISTURBANCE IN ATTENTION [None]
  - IMPAIRED WORK ABILITY [None]
  - INSOMNIA [None]
  - MEMORY IMPAIRMENT [None]
  - MIDDLE INSOMNIA [None]
  - MUSCLE DISORDER [None]
  - MUSCULOSKELETAL STIFFNESS [None]
  - MYALGIA [None]
  - NECK PAIN [None]
  - PAIN [None]
  - PAIN IN EXTREMITY [None]
  - RASH PRURITIC [None]
  - SUDDEN ONSET OF SLEEP [None]
  - THINKING ABNORMAL [None]
